FAERS Safety Report 7989882-4 (Version None)
Quarter: 2011Q4

REPORT INFORMATION
  Report Type: 
  Country: None (occurrence: None)
  Receive Date: 20111219
  Receipt Date: 20110127
  Transmission Date: 20120403
  Serious: No
  Sender: FDA-Public Use
  Company Number: US-ASTRAZENECA-2011SE04736

PATIENT
  Age: 64 Year
  Sex: Female
  Weight: 68 kg

DRUGS (9)
  1. MACRODANTIN [Concomitant]
  2. VITAMIN TAB [Concomitant]
  3. CRESTOR [Suspect]
     Indication: HYPERCHOLESTEROLAEMIA
     Dosage: 2.5 MG TWO TIMES A WEEK
     Route: 048
     Dates: start: 20100901, end: 20110113
  4. PRILOSEC [Concomitant]
     Indication: HIATUS HERNIA
  5. ASTAPRO [Concomitant]
     Indication: MULTIPLE ALLERGIES
  6. NASONEX [Concomitant]
     Indication: MULTIPLE ALLERGIES
  7. VAGOFEM [Concomitant]
  8. LEVOXYL [Concomitant]
  9. MINERAL TAB [Concomitant]

REACTIONS (1)
  - BLOOD PRESSURE INCREASED [None]
